FAERS Safety Report 19519845 (Version 1)
Quarter: 2021Q3

REPORT INFORMATION
  Report Type: Spontaneous
  Country: US (occurrence: US)
  Receive Date: 20210712
  Receipt Date: 20210712
  Transmission Date: 20211014
  Serious: Yes (Other)
  Sender: FDA-Public Use
  Company Number: US-AUROBINDO-AUR-APL-2021-028675

PATIENT
  Age: 54 Year
  Sex: Male

DRUGS (2)
  1. AMIODARONE HYDROCHLORIDE. [Suspect]
     Active Substance: AMIODARONE HYDROCHLORIDE
     Indication: ATRIAL FIBRILLATION
     Dosage: 700 MILLIGRAM, ONCE A DAY
     Route: 065
  2. SOTALOL. [Concomitant]
     Active Substance: SOTALOL
     Indication: ATRIAL FIBRILLATION
     Dosage: UNK
     Route: 065

REACTIONS (4)
  - Pleural effusion [Recovered/Resolved]
  - Organising pneumonia [Recovered/Resolved]
  - Pulmonary toxicity [Recovered/Resolved]
  - Pneumothorax [Recovered/Resolved]
